FAERS Safety Report 11785681 (Version 1)
Quarter: 2015Q4

REPORT INFORMATION
  Report Type: Report from Study
  Country: BR (occurrence: BR)
  Receive Date: 20151130
  Receipt Date: 20151130
  Transmission Date: 20160305
  Serious: Yes (Other)
  Sender: FDA-Public Use
  Company Number: PHHY2015BR122266

PATIENT
  Sex: Female
  Weight: 58 kg

DRUGS (5)
  1. PURAN [Concomitant]
     Active Substance: LEVOTHYROXINE SODIUM
     Indication: HYPERTHYROIDISM
     Dosage: 1 DF, QD
     Route: 048
     Dates: start: 2006
  2. AFINITOR [Suspect]
     Active Substance: EVEROLIMUS
     Indication: BONE CANCER
     Dosage: 1 DF, QD
     Route: 048
     Dates: start: 201509
  3. AFINITOR [Suspect]
     Active Substance: EVEROLIMUS
     Dosage: 1 DF, QD
     Route: 048
  4. AROMASIN [Concomitant]
     Active Substance: EXEMESTANE
     Indication: BONE CANCER
     Dosage: 1 DF, QD
     Route: 048
     Dates: start: 201509
  5. TRAMAL [Concomitant]
     Active Substance: TRAMADOL
     Indication: CANCER PAIN
     Dosage: 2 DF, QD
     Route: 048

REACTIONS (4)
  - Pruritus generalised [Recovering/Resolving]
  - Stomatitis [Recovered/Resolved]
  - Skin hypertrophy [Recovering/Resolving]
  - Product use issue [Unknown]
